FAERS Safety Report 8848317 (Version 1)
Quarter: 2012Q4

REPORT INFORMATION
  Report Type: 
  Country: US (occurrence: US)
  Receive Date: 20121019
  Receipt Date: 20121019
  Transmission Date: 20130627
  Serious: Yes (Hospitalization)
  Sender: FDA-Public Use
  Company Number: US-MYLANLABS-2012S1021015

PATIENT
  Age: 80 Year
  Sex: Male

DRUGS (2)
  1. AMIODARONE [Suspect]
     Indication: ATRIAL FIBRILLATION
     Dosage: 200mg daily
     Route: 065
  2. WARFARIN [Concomitant]
     Indication: ANTICOAGULANT THERAPY
     Route: 065

REACTIONS (2)
  - Haemorrhage [Recovered/Resolved]
  - Coagulopathy [Recovered/Resolved]
